FAERS Safety Report 12858299 (Version 1)
Quarter: 2016Q4

REPORT INFORMATION
  Report Type: Spontaneous
  Country: RU (occurrence: RU)
  Receive Date: 20161018
  Receipt Date: 20161018
  Transmission Date: 20170207
  Serious: Yes (Hospitalization, Other)
  Sender: FDA-Public Use
  Company Number: RU-ASTRAZENECA-2016SF08879

PATIENT
  Age: 64 Year
  Sex: Female
  Weight: 91 kg

DRUGS (8)
  1. BRILINTA [Suspect]
     Active Substance: TICAGRELOR
     Indication: STENT PLACEMENT
     Route: 048
     Dates: start: 20160723
  2. PRESTARIUM [Concomitant]
     Active Substance: PERINDOPRIL
  3. THROMBO ASS [Concomitant]
     Active Substance: ASPIRIN
  4. VEROSPIRON [Concomitant]
     Active Substance: SPIRONOLACTONE
  5. BISOPROLOL [Concomitant]
     Active Substance: BISOPROLOL
  6. BRILINTA [Suspect]
     Active Substance: TICAGRELOR
     Indication: MYOCARDIAL INFARCTION
     Route: 048
     Dates: start: 20160723
  7. ATORVASTATIN [Concomitant]
     Active Substance: ATORVASTATIN
  8. ROSUVASTATIN. [Concomitant]
     Active Substance: ROSUVASTATIN

REACTIONS (1)
  - Myocardial infarction [Recovered/Resolved]

NARRATIVE: CASE EVENT DATE: 20160927
